FAERS Safety Report 17543881 (Version 2)
Quarter: 2020Q1

REPORT INFORMATION
  Report Type: Report from Study
  Country: US (occurrence: US)
  Receive Date: 20200316
  Receipt Date: 20200331
  Transmission Date: 20200409
  Serious: Yes (Other)
  Sender: FDA-Public Use
  Company Number: US-ROCHE-2563222

PATIENT
  Sex: Female

DRUGS (2)
  1. OCREVUS [Suspect]
     Active Substance: OCRELIZUMAB
     Indication: RELAPSING MULTIPLE SCLEROSIS
     Dosage: ONGOING:YES DAY 1 DAY 15
     Route: 042
     Dates: start: 20190219
  2. OCREVUS [Suspect]
     Active Substance: OCRELIZUMAB
     Indication: MULTIPLE SCLEROSIS
     Route: 042
     Dates: start: 20190806

REACTIONS (9)
  - Head injury [Not Recovered/Not Resolved]
  - Road traffic accident [Unknown]
  - Respiratory tract infection [Recovered/Resolved]
  - Fall [Unknown]
  - Tooth fracture [Unknown]
  - Malaise [Not Recovered/Not Resolved]
  - Cortisol decreased [Not Recovered/Not Resolved]
  - Osteomyelitis [Recovered/Resolved]
  - Memory impairment [Not Recovered/Not Resolved]
